FAERS Safety Report 14331418 (Version 1)
Quarter: 2017Q4

REPORT INFORMATION
  Report Type: Spontaneous
  Country: PT (occurrence: PT)
  Receive Date: 20171228
  Receipt Date: 20171228
  Transmission Date: 20180321
  Serious: Yes (Hospitalization, Disabling, Other)
  Sender: FDA-Public Use
  Company Number: PT-ACCORD-062425

PATIENT
  Age: 70 Year
  Sex: Female

DRUGS (2)
  1. DOCETAXEL. [Suspect]
     Active Substance: DOCETAXEL
     Indication: NEUROENDOCRINE TUMOUR OF THE LUNG METASTATIC
  2. CARBOPLATIN. [Suspect]
     Active Substance: CARBOPLATIN
     Indication: NEUROENDOCRINE TUMOUR OF THE LUNG METASTATIC

REACTIONS (6)
  - Amaurosis [Not Recovered/Not Resolved]
  - Panophthalmitis [Recovered/Resolved with Sequelae]
  - Pyelonephritis [Unknown]
  - Febrile neutropenia [Unknown]
  - Bacteraemia [Unknown]
  - Off label use [Unknown]
